FAERS Safety Report 9120192 (Version 4)
Quarter: 2013Q3

REPORT INFORMATION
  Report Type: Spontaneous
  Country: US (occurrence: US)
  Receive Date: 20130226
  Receipt Date: 20130927
  Transmission Date: 20140515
  Serious: Yes (Other)
  Sender: FDA-Public Use
  Company Number: US-PFIZER INC-2013067072

PATIENT
  Age: 48 Year
  Sex: Female
  Weight: 170 kg

DRUGS (4)
  1. LYRICA [Suspect]
     Indication: FIBROMYALGIA
     Dosage: 50 MG, UNK
  2. LYRICA [Suspect]
     Dosage: 100 MG, 2X/DAY
     Route: 048
     Dates: start: 2012, end: 20121130
  3. NEURONTIN [Suspect]
     Dosage: UNK
  4. SAVELLA [Concomitant]
     Indication: FIBROMYALGIA
     Dosage: UNK

REACTIONS (13)
  - Suicidal ideation [Unknown]
  - Suicide attempt [Unknown]
  - Hypersensitivity [Unknown]
  - Swelling face [Unknown]
  - Weight increased [Unknown]
  - Depressed mood [Recovering/Resolving]
  - Pruritus generalised [Unknown]
  - Agitation [Recovering/Resolving]
  - Mental disorder [Recovering/Resolving]
  - Mood altered [Recovering/Resolving]
  - Drug intolerance [Unknown]
  - Memory impairment [Recovering/Resolving]
  - Malaise [Recovering/Resolving]
